FAERS Safety Report 8536627-5 (Version None)
Quarter: 2012Q3

REPORT INFORMATION
  Report Type: 
  Country: None (occurrence: None)
  Receive Date: 20120725
  Receipt Date: 20120720
  Transmission Date: 20120928
  Serious: Yes (Life-Threatening, Other)
  Sender: FDA-Public Use
  Company Number: US-ASTRAZENECA-2012SE51628

PATIENT
  Age: 33 Year
  Sex: Female
  Weight: 29.9 kg

DRUGS (17)
  1. DEPAKOTE [Concomitant]
     Indication: DEPRESSION
     Dosage: 2 TABLETS ORAL EVRY BEDTIME
     Route: 048
  2. LITHIUM CARBONATE [Concomitant]
     Indication: ANXIETY
     Route: 048
  3. LITHIUM CARBONATE [Concomitant]
     Indication: DEPRESSION
     Route: 048
  4. WELLBUTRIN [Concomitant]
     Indication: DEPRESSION
     Route: 048
  5. SEROQUEL [Suspect]
     Indication: DEPRESSION
     Route: 048
  6. WELLBUTRIN [Concomitant]
     Indication: BIPOLAR II DISORDER
     Route: 048
  7. SEROQUEL [Suspect]
     Indication: BIPOLAR II DISORDER
     Route: 048
  8. SEROQUEL [Suspect]
     Route: 048
  9. ATENOLOL [Suspect]
     Indication: HYPERTENSION
     Route: 048
  10. SEROQUEL [Suspect]
     Route: 048
  11. LORAZEPAM [Concomitant]
     Indication: BIPOLAR II DISORDER
  12. SEROQUEL [Suspect]
     Indication: ANXIETY
     Route: 048
  13. SEROQUEL [Suspect]
     Route: 048
  14. LITHIUM CARBONATE [Concomitant]
     Indication: BIPOLAR II DISORDER
     Route: 048
  15. WELLBUTRIN [Concomitant]
     Indication: ANXIETY
     Route: 048
  16. DEPAKOTE [Concomitant]
     Indication: ANXIETY
     Dosage: 2 TABLETS ORAL EVRY BEDTIME
     Route: 048
  17. DEPAKOTE [Concomitant]
     Indication: BIPOLAR II DISORDER
     Dosage: 2 TABLETS ORAL EVRY BEDTIME
     Route: 048

REACTIONS (23)
  - OVERDOSE [None]
  - BENIGN INTRACRANIAL HYPERTENSION [None]
  - HYPOTHYROIDISM [None]
  - MEMORY IMPAIRMENT [None]
  - ESSENTIAL TREMOR [None]
  - SYNCOPE [None]
  - CONVULSION [None]
  - DRUG ABUSE [None]
  - HYPERLIPIDAEMIA [None]
  - VISUAL IMPAIRMENT [None]
  - NEPHROLITHIASIS [None]
  - PANCREATITIS RELAPSING [None]
  - ENDOMETRIOSIS [None]
  - SUICIDE ATTEMPT [None]
  - ABDOMINAL PAIN [None]
  - CONCUSSION [None]
  - GLUCOSE TOLERANCE IMPAIRED [None]
  - SECONDARY ADRENOCORTICAL INSUFFICIENCY [None]
  - BORDERLINE GLAUCOMA [None]
  - HYPOXIC-ISCHAEMIC ENCEPHALOPATHY [None]
  - GASTROOESOPHAGEAL REFLUX DISEASE [None]
  - MIGRAINE [None]
  - DYSPEPSIA [None]
